FAERS Safety Report 17372190 (Version 1)
Quarter: 2020Q1

REPORT INFORMATION
  Report Type: Spontaneous
  Country: JP (occurrence: JP)
  Receive Date: 20200205
  Receipt Date: 20200205
  Transmission Date: 20200409
  Serious: Yes (Other)
  Sender: FDA-Public Use
  Company Number: NVSJ2019JP002605

PATIENT

DRUGS (2)
  1. NEORAL [Suspect]
     Active Substance: CYCLOSPORINE
     Indication: KIDNEY TRANSPLANT REJECTION
     Dosage: UNK
     Route: 048
  2. CERTICAN [Suspect]
     Active Substance: EVEROLIMUS
     Indication: KIDNEY TRANSPLANT REJECTION
     Dosage: UNK
     Route: 048

REACTIONS (6)
  - Malignant neoplasm progression [Unknown]
  - Hydronephrosis [Unknown]
  - Ureteric cancer [Unknown]
  - Malignant neoplasm of renal pelvis [Unknown]
  - Bladder cancer [Unknown]
  - Metastases to lymph nodes [Unknown]
